FAERS Safety Report 23770692 (Version 2)
Quarter: 2025Q4

REPORT INFORMATION
  Report Type: Spontaneous
  Country: CA (occurrence: CA)
  Receive Date: 20240422
  Receipt Date: 20251201
  Transmission Date: 20260117
  Serious: Yes (Hospitalization)
  Sender: STRIDES
  Company Number: CA-STRIDES ARCOLAB LIMITED-2024SP004641

PATIENT
  Age: 4 Year
  Sex: Male

DRUGS (10)
  1. PREDNISOLONE [Suspect]
     Active Substance: PREDNISOLONE
     Indication: Rash pruritic
     Dosage: 1 MILLIGRAM/KILOGRAM
     Route: 048
  2. PREDNISOLONE [Suspect]
     Active Substance: PREDNISOLONE
     Indication: Angioedema
  3. CETIRIZINE [Suspect]
     Active Substance: CETIRIZINE HYDROCHLORIDE
     Indication: Rash pruritic
     Dosage: 5 MILLIGRAM, QD
     Route: 048
  4. CETIRIZINE [Suspect]
     Active Substance: CETIRIZINE HYDROCHLORIDE
     Indication: Angioedema
     Dosage: UNK, PRN; (MANAGED WITH UP TO 4 TIMES THE USUAL DOSE OF CETIRIZINE)
     Route: 065
  5. RUPATADINE [Concomitant]
     Active Substance: RUPATADINE
     Indication: Rash pruritic
     Dosage: 10 MILLIGRAM (RECEIVED 20MG IN TOTAL)
     Route: 065
  6. EPINEPHRINE [Concomitant]
     Active Substance: EPINEPHRINE
     Indication: Serum sickness-like reaction
     Dosage: 0.15 MILLIGRAM
     Route: 030
  7. LACTATED RINGERS SOLUTION [Concomitant]
     Active Substance: CALCIUM CHLORIDE\POTASSIUM CHLORIDE\SODIUM CHLORIDE\SODIUM LACTATE
     Indication: Vehicle solution use
     Dosage: 500 MILLILITER (FOLLOWED BY 70 ML/HR OF MAINTENANCE RINGER^S-LACTATE FOR 16 H)
     Route: 042
  8. LACTATED RINGERS SOLUTION [Concomitant]
     Active Substance: CALCIUM CHLORIDE\POTASSIUM CHLORIDE\SODIUM CHLORIDE\SODIUM LACTATE
     Dosage: 70 MILLILITER (FOLLOWED BY 70 ML/HR OF MAINTENANCE RINGER^S-LACTATE FOR 16 H)
     Route: 042
  9. AMOXICILLIN [Concomitant]
     Active Substance: AMOXICILLIN
     Indication: Otitis media
     Dosage: UNK (INITIAL COURSE OF 7 DAYS FOLLOWED BY SCHEDULED FOR 10DAYS COURSE IN THE SECOND COURSE )
     Route: 065
  10. AMOXICILLIN [Concomitant]
     Active Substance: AMOXICILLIN
     Dosage: UNK; SECOND COURSE
     Route: 065

REACTIONS (3)
  - Angioedema [Unknown]
  - Disease progression [Recovered/Resolved]
  - Overdose [Unknown]
